FAERS Safety Report 20037235 (Version 1)
Quarter: 2021Q4

REPORT INFORMATION
  Report Type: Spontaneous
  Country: US (occurrence: US)
  Receive Date: 20211105
  Receipt Date: 20211105
  Transmission Date: 20220303
  Serious: Yes (Other)
  Sender: FDA-Public Use
  Company Number: US-BAYER-2021A239193

PATIENT
  Age: 70 Year
  Sex: Male

DRUGS (6)
  1. ASPIRIN [Suspect]
     Active Substance: ASPIRIN
  2. ALOGLIPTIN [Concomitant]
     Active Substance: ALOGLIPTIN
  3. ALOGLIPTIN [Concomitant]
     Active Substance: ALOGLIPTIN
  4. AMLODIPINE [Concomitant]
     Active Substance: AMLODIPINE BESYLATE
  5. APIXABAN [Concomitant]
     Active Substance: APIXABAN
  6. ATORVASTATIN [Concomitant]
     Active Substance: ATORVASTATIN

REACTIONS (3)
  - Vitreous haemorrhage [None]
  - Retinal haemorrhage [None]
  - Vitreous detachment [None]
